FAERS Safety Report 21246449 (Version 6)
Quarter: 2023Q2

REPORT INFORMATION
  Report Type: Report from Study
  Country: US (occurrence: US)
  Receive Date: 20220824
  Receipt Date: 20230520
  Transmission Date: 20230722
  Serious: Yes (Other)
  Sender: FDA-Public Use
  Company Number: US-drreddys-CLI/USA/22/0153553

PATIENT
  Age: 27 Year
  Sex: Female

DRUGS (1)
  1. ZENATANE [Suspect]
     Active Substance: ISOTRETINOIN
     Indication: Acne
     Dosage: RMA ISSUE DATE: 23 FEBRUARY 2022 11:19:11 AM, 16 MARCH 2022 01:50:56 PM, 12 MAY 2022 08:01:02 AM, 10
     Dates: start: 20220222, end: 20220813

REACTIONS (1)
  - Exposure during pregnancy [Unknown]

NARRATIVE: CASE EVENT DATE: 20220813
